FAERS Safety Report 5300859-X (Version None)
Quarter: 2007Q2

REPORT INFORMATION
  Report Type: 
  Country: None (occurrence: None)
  Receive Date: 20070412
  Receipt Date: 20070404
  Transmission Date: 20071010
  Serious: Yes (Hospitalization)
  Sender: FDA-Public Use
  Company Number: 232619K07USA

PATIENT
  Age: 77 Year
  Sex: Male

DRUGS (1)
  1. REBIF [Suspect]
     Indication: MULTIPLE SCLEROSIS
     Dosage: 44 MCG, 3 IN 1 WEEKS, SUBCUTANEOUS
     Route: 058
     Dates: start: 20060407

REACTIONS (5)
  - CEREBROVASCULAR ACCIDENT [None]
  - DYSPHEMIA [None]
  - FAECAL INCONTINENCE [None]
  - FALL [None]
  - URINARY INCONTINENCE [None]
